FAERS Safety Report 10369477 (Version 1)
Quarter: 2014Q1

REPORT INFORMATION
  Report Type: Spontaneous
  Country: US (occurrence: None)
  Receive Date: 20140306
  Receipt Date: 20140306
  Transmission Date: 20141002
  Serious: Yes (Other)
  Sender: FDA-Public Use
  Company Number: 163-21880-13091019

PATIENT
  Age: 66 Year
  Sex: Female

DRUGS (19)
  1. REVLIMID [Suspect]
     Indication: MYELODYSPLASTIC SYNDROME
     Route: 048
     Dates: start: 201203
  2. EXJADE (DEFERASIROX) (UNKNOWN) [Concomitant]
  3. ADULT ASPIRIN EC LOW STRENGTH (ACETYLSALICYLIC ACID) (TABLETS) [Concomitant]
  4. OMEPRAZOLE (UNKNOWN) [Concomitant]
  5. CITALOPRAM HYDROBROMIDE (TABLETS) [Concomitant]
  6. VITAMIN D3 (COLECALCIFEROL) (CAPSULES) [Concomitant]
  7. CALCIUM CARBONATE VITAMIN D (LEKOVIT CA) (TABLETS) [Concomitant]
  8. PRENATAL VITAMINS (TABLETS) [Concomitant]
  9. ALEVE (NAPROXEN SODIUM) (TABLETS) [Concomitant]
  10. LEVOTHROID (LEVOTHYROXINE SODIUM) (TABLETS) [Concomitant]
  11. ULTRA MEGA 3 FISH OIL (CAPSULES) [Concomitant]
  12. ACYCLOVIR (ACICLOVIR) (CAPSULES) [Concomitant]
  13. LASIX (FUROSEMIDE) (TABLETS) [Concomitant]
  14. KLOR-CON (POTASSIUM CHLORIDE) (TABLETS) [Concomitant]
  15. AMIODARONE HCL (AMIODARONE HYDROCHLORIDE) (TABLETS) [Concomitant]
  16. VITAMIN B12 (CYANOCOBALAMIN) (INJECTION) [Concomitant]
  17. CHERATUSSIN AC (SYRUP) [Concomitant]
  18. ZOFRAN (ONDANSETRON HYDROCHLORIDE) (TABLETS) [Concomitant]
  19. ARANESP (DARBEPOETIN ALFA) (UNKNOWN) [Concomitant]

REACTIONS (2)
  - Anaemia [None]
  - Rash [None]
